FAERS Safety Report 7109898-X (Version None)
Quarter: 2010Q4

REPORT INFORMATION
  Report Type: 
  Country: None (occurrence: None)
  Receive Date: 20101118
  Receipt Date: 20101108
  Transmission Date: 20110411
  Serious: Yes (Hospitalization)
  Sender: FDA-Public Use
  Company Number: US-ELI_LILLY_AND_COMPANY-US201010006602

PATIENT
  Sex: Male

DRUGS (9)
  1. GEMCITABINE HCL [Suspect]
     Indication: PANCREATIC CARCINOMA
     Dosage: 1000 MG/M2, UNKNOWN
     Route: 065
     Dates: start: 20100810, end: 20101019
  2. PACLITAXEL [Suspect]
     Indication: PANCREATIC CARCINOMA
     Dosage: 125 MG/M2, WEEKLY (1/W)
     Route: 065
     Dates: start: 20100810, end: 20101019
  3. OXYCONTIN [Concomitant]
     Indication: PAIN
     Dosage: 120 MG, UNKNOWN
     Route: 048
     Dates: start: 20101012
  4. NEXIUM [Concomitant]
     Indication: DYSPEPSIA
     Dosage: 40 MG, UNKNOWN
     Route: 048
     Dates: start: 20101013
  5. METFORMIN [Concomitant]
     Indication: DIABETES MELLITUS
     Dosage: 1500 MG, UNKNOWN
     Route: 048
     Dates: start: 20060101
  6. LANTUS [Concomitant]
     Indication: DIABETES MELLITUS
     Dosage: 15 U, UNKNOWN
     Route: 058
     Dates: start: 20100701
  7. COZAAR [Concomitant]
     Indication: HYPERTENSION
     Dosage: 50 MG, UNKNOWN
     Route: 048
     Dates: start: 20000101
  8. COMPAZINE [Concomitant]
     Indication: NAUSEA
     Dosage: 10 MG, EVERY 4 HRS
     Route: 048
     Dates: start: 20100810
  9. ZOFRAN [Concomitant]
     Indication: NAUSEA
     Dosage: 8 MG, EVERY 8 HRS
     Route: 048
     Dates: start: 20100921

REACTIONS (1)
  - BILIARY SEPSIS [None]
